FAERS Safety Report 19393639 (Version 1)
Quarter: 2021Q2

REPORT INFORMATION
  Report Type: Spontaneous
  Country: US (occurrence: US)
  Receive Date: 20210608
  Receipt Date: 20210608
  Transmission Date: 20210717
  Serious: Yes (Other)
  Sender: FDA-Public Use
  Company Number: None

PATIENT
  Age: 61 Year
  Sex: Female
  Weight: 53.52 kg

DRUGS (8)
  1. VITAMIN B6 [Concomitant]
     Active Substance: PYRIDOXINE HYDROCHLORIDE
  2. DULCOLAX NOS [Concomitant]
     Active Substance: BISACODYL OR DOCUSATE SODIUM
  3. VITAMIN B?COMPLEX [Concomitant]
     Active Substance: DEXPANTHENOL\NIACINAMIDE\PYRIDOXINE HYDROCHLORIDE\RIBOFLAVIN 5^-PHOSPHATE SODIUM\THIAMINE HYDROCHLORIDE
  4. LOOP RECORDER [Concomitant]
  5. COLLAGEN [Concomitant]
     Active Substance: COLLAGEN
  6. MVI [Concomitant]
     Active Substance: VITAMINS
  7. VIT D [Concomitant]
     Active Substance: VITAMIN D NOS
  8. INJECTAFER [Suspect]
     Active Substance: FERRIC CARBOXYMALTOSE
     Dosage: ?          QUANTITY:750 MG MILLIGRAM(S);OTHER FREQUENCY:EVERYWK2TWICEADAY ;?
     Route: 042
     Dates: start: 20200204, end: 20200204

REACTIONS (5)
  - Pain [None]
  - Dizziness [None]
  - Influenza like illness [None]
  - Confusional state [None]
  - Hallucination [None]

NARRATIVE: CASE EVENT DATE: 20200204
